FAERS Safety Report 15903892 (Version 1)
Quarter: 2019Q1

REPORT INFORMATION
  Report Type: Spontaneous
  Country: DE (occurrence: DE)
  Receive Date: 20190204
  Receipt Date: 20190204
  Transmission Date: 20190417
  Serious: Yes (Hospitalization)
  Sender: FDA-Public Use
  Company Number: DE-ACCORD-105346

PATIENT
  Age: 62 Year
  Sex: Male

DRUGS (12)
  1. METOPROLOL. [Concomitant]
     Active Substance: METOPROLOL
     Dosage: 47.5 MG, 1/2-0-1/2, TABLETTEN
     Route: 048
  2. PANTOPRAZOLE [Concomitant]
     Active Substance: PANTOPRAZOLE
     Dosage: 40 MG, 1-0-1, TABLETTEN
     Route: 048
  3. ASPIRIN. [Concomitant]
     Active Substance: ASPIRIN
     Dosage: 100 MG, 1-0-0, TABLETTEN
     Route: 048
  4. MILGAMMA NA [Concomitant]
     Dosage: 1-0-1, KAPSELN
     Route: 048
  5. LACTULOSE. [Concomitant]
     Active Substance: LACTULOSE
     Dosage: 10 ML, 1-1-1, TABLETTEN
     Route: 048
  6. URSODEOXYCHOLATE SODIUM/URSODEOXYCHOLIC ACID [Concomitant]
     Dosage: 250 MG, 1-1-1
     Route: 048
  7. ORNITHINE ASPARTATE [Concomitant]
     Active Substance: ORNITHINE ASPARTATE
     Dosage: 3000 MG, 1-1-1, GRANULAT
     Route: 048
  8. REKAWAN [Concomitant]
     Active Substance: POTASSIUM CHLORIDE
     Dosage: NACH WERT
     Route: 048
  9. RIFAXIMIN. [Concomitant]
     Active Substance: RIFAXIMIN
     Dosage: 550 MG, 1-0-1, TABLETTEN
     Route: 048
  10. FUROSEMIDE. [Suspect]
     Active Substance: FUROSEMIDE
     Indication: PRODUCT USED FOR UNKNOWN INDICATION
     Dosage: 125 MG, 1-0-0, TABLETS
     Route: 048
  11. NALOXONE HYDROCHLORIDE/TILIDINE HYDROCHLORIDE [Concomitant]
     Dosage: 50 4 MG, 1-0-1
     Route: 048
  12. LIMPTAR [Concomitant]
     Active Substance: AMINOPHYLLINE\QUININE SULFATE
     Dosage: 200 MG, 1-0-1, TABLETTEN
     Route: 048

REACTIONS (5)
  - Fracture [Unknown]
  - Circulatory collapse [Unknown]
  - Syncope [Unknown]
  - Hypokalaemia [Unknown]
  - Disturbance in attention [Unknown]
